FAERS Safety Report 7003273-4 (Version None)
Quarter: 2010Q3

REPORT INFORMATION
  Report Type: 
  Country: None (occurrence: None)
  Receive Date: 20100920
  Receipt Date: 20100908
  Transmission Date: 20110219
  Serious: Yes (Hospitalization, Other)
  Sender: FDA-Public Use
  Company Number: US-PFIZER INC-2010102874

PATIENT
  Sex: Female
  Weight: 77.1 kg

DRUGS (3)
  1. LYRICA [Suspect]
     Indication: CONVULSION
     Dosage: 200 MG, 3X/DAY
     Route: 048
     Dates: start: 20080101, end: 20100101
  2. LYRICA [Suspect]
     Dosage: 200 MG, 2X/DAY
     Route: 048
     Dates: start: 20100101
  3. CARBATROL [Suspect]
     Indication: CONVULSION
     Dosage: 200 MG, 3X/DAY
     Route: 048
     Dates: start: 20080101

REACTIONS (7)
  - CONVULSION [None]
  - FEELING ABNORMAL [None]
  - HEADACHE [None]
  - HYPERHIDROSIS [None]
  - JOINT SWELLING [None]
  - PAIN IN EXTREMITY [None]
  - PALPITATIONS [None]
